FAERS Safety Report 6428890-1 (Version None)
Quarter: 2009Q4

REPORT INFORMATION
  Report Type: 
  Country: None (occurrence: None)
  Receive Date: 20091105
  Receipt Date: 20091026
  Transmission Date: 20100525
  Serious: No
  Sender: FDA-Public Use
  Company Number: US-B.I. PHARMACEUTICALS,INC./RIDGEFIELD-2009-BP-12384BP

PATIENT
  Age: 66 Year
  Sex: Male

DRUGS (8)
  1. FLOMAX [Suspect]
     Indication: BENIGN PROSTATIC HYPERPLASIA
     Dosage: 0.8 MG
     Route: 048
     Dates: start: 20071001
  2. FLOMAX [Suspect]
     Dosage: 0.4 MG
     Route: 048
     Dates: start: 20070901, end: 20071001
  3. FINASTERIDE [Concomitant]
     Indication: PROSTATOMEGALY
     Dates: start: 20091012
  4. ATENOLOL [Concomitant]
     Indication: ATRIAL FIBRILLATION
  5. SYNTHROID [Concomitant]
     Indication: HYPOTHYROIDISM
  6. MEDICATION NOT FURTHER SPECIFIED [Concomitant]
     Indication: BLOOD PRESSURE
  7. LIPITOR [Concomitant]
     Indication: BLOOD CHOLESTEROL INCREASED
  8. WARFARIN SODIUM [Concomitant]
     Indication: ATRIAL FIBRILLATION

REACTIONS (3)
  - DRUG INEFFECTIVE [None]
  - NOCTURIA [None]
  - TYPE 2 DIABETES MELLITUS [None]
